FAERS Safety Report 8977736 (Version 2)
Quarter: 2013Q2

REPORT INFORMATION
  Report Type: Spontaneous
  Country: US (occurrence: US)
  Receive Date: 20121220
  Receipt Date: 20130521
  Transmission Date: 20140414
  Serious: No
  Sender: FDA-Public Use
  Company Number: US-ASTRAZENECA-2012SE00543

PATIENT
  Age: 79 Year
  Sex: Female
  Weight: 108.9 kg

DRUGS (19)
  1. LISINOPRIL [Suspect]
     Indication: BLOOD PRESSURE ABNORMAL
     Route: 048
  2. METROPROLOL [Suspect]
     Indication: BLOOD PRESSURE ABNORMAL
     Route: 048
  3. METROPROLOL [Suspect]
     Indication: BLOOD PRESSURE ABNORMAL
     Route: 048
  4. CRESTOR [Suspect]
     Indication: CORONARY ARTERY DISEASE
     Route: 048
     Dates: start: 201102
  5. CRESTOR [Suspect]
     Indication: MYOCARDIAL INFARCTION
     Route: 048
     Dates: start: 201102
  6. CRESTOR [Suspect]
     Indication: BLOOD CHOLESTEROL INCREASED
     Route: 048
     Dates: start: 201102
  7. CRESTOR [Suspect]
     Indication: CORONARY ARTERY DISEASE
     Route: 048
  8. CRESTOR [Suspect]
     Indication: MYOCARDIAL INFARCTION
     Route: 048
  9. CRESTOR [Suspect]
     Indication: BLOOD CHOLESTEROL INCREASED
     Route: 048
  10. CRESTOR [Suspect]
     Indication: CORONARY ARTERY DISEASE
     Route: 048
     Dates: start: 201101
  11. CRESTOR [Suspect]
     Indication: MYOCARDIAL INFARCTION
     Route: 048
     Dates: start: 201101
  12. CRESTOR [Suspect]
     Indication: BLOOD CHOLESTEROL INCREASED
     Route: 048
     Dates: start: 201101
  13. AVAPRO [Concomitant]
  14. PLAVIX [Concomitant]
  15. ASPIRIN [Concomitant]
  16. SYNTHROID [Concomitant]
     Indication: HYPOTHYROIDISM
     Dosage: 112 MCG 4 TIMES A WEEK, AND 100 MCG 3 TIMES A WEEK.
     Route: 048
  17. HCTZ [Concomitant]
     Indication: BLOOD PRESSURE ABNORMAL
     Route: 048
  18. MULTI VITAMIN [Concomitant]
  19. XANAX [Concomitant]
     Indication: ANXIETY
     Route: 048

REACTIONS (6)
  - Chills [Unknown]
  - Bone pain [Unknown]
  - Insomnia [Unknown]
  - Nasopharyngitis [Unknown]
  - Myalgia [Unknown]
  - Fatigue [Unknown]
